FAERS Safety Report 7921536-2 (Version None)
Quarter: 2011Q4

REPORT INFORMATION
  Report Type: 
  Country: None (occurrence: None)
  Receive Date: 20111117
  Receipt Date: 20111115
  Transmission Date: 20120403
  Serious: No
  Sender: FDA-Public Use
  Company Number: US-BAYER-2011-110888

PATIENT
  Age: 64 Year
  Sex: Female
  Weight: 60.317 kg

DRUGS (1)
  1. ULTRAVIST 150 [Suspect]
     Indication: RENAL ARTERY STENOSIS
     Dosage: 100 ML, ONCE
     Route: 042
     Dates: start: 20111115

REACTIONS (1)
  - SENSATION OF FOREIGN BODY [None]
